FAERS Safety Report 4909449-1 (Version None)
Quarter: 2006Q1

REPORT INFORMATION
  Report Type: 
  Country: None (occurrence: None)
  Receive Date: 20060213
  Receipt Date: 20050607
  Transmission Date: 20060701
  Serious: Yes (Hospitalization, Disabling)
  Sender: FDA-Public Use
  Company Number: US-MERCK-0506USA01440

PATIENT
  Age: 61 Year
  Sex: Female
  Weight: 80 kg

DRUGS (2)
  1. VIOXX [Suspect]
     Indication: LIMB DISCOMFORT
     Route: 048
     Dates: start: 20020201, end: 20021101
  2. VIOXX [Suspect]
     Indication: HYPOAESTHESIA
     Route: 048
     Dates: start: 20020201, end: 20021101

REACTIONS (3)
  - PULMONARY EMBOLISM [None]
  - RESPIRATORY DISORDER [None]
  - THROMBOSIS [None]
